FAERS Safety Report 11501672 (Version 3)
Quarter: 2016Q2

REPORT INFORMATION
  Report Type: Spontaneous
  Country: US (occurrence: US)
  Receive Date: 20150914
  Receipt Date: 20160607
  Transmission Date: 20160815
  Serious: Yes (Hospitalization, Other)
  Sender: FDA-Public Use
  Company Number: US-GLAXOSMITHKLINE-US2015130427

PATIENT
  Age: 61 Year
  Sex: Male

DRUGS (21)
  1. CQ-10 [Concomitant]
  2. CITALOPRAM [Concomitant]
     Active Substance: CITALOPRAM HYDROBROMIDE
  3. COMBIVENT [Concomitant]
     Active Substance: ALBUTEROL SULFATE\IPRATROPIUM BROMIDE
  4. ASA [Concomitant]
     Active Substance: ASPIRIN
  5. HUMULIN R INSULIN [Concomitant]
  6. NITROSTAT [Concomitant]
     Active Substance: NITROGLYCERIN
  7. RAMIPRIL. [Concomitant]
     Active Substance: RAMIPRIL
  8. VITAMIN D3 [Concomitant]
     Active Substance: CHOLECALCIFEROL
  9. COREG CR [Suspect]
     Active Substance: CARVEDILOL PHOSPHATE
     Indication: CARDIOVASCULAR EVENT PROPHYLAXIS
     Dosage: 20 MG, 1D
     Route: 048
     Dates: start: 2009
  10. KLOR-CON [Concomitant]
     Active Substance: POTASSIUM CHLORIDE
  11. PLAVIX [Concomitant]
     Active Substance: CLOPIDOGREL BISULFATE
  12. IRON [Concomitant]
     Active Substance: IRON
  13. VITAMIN E [Concomitant]
     Active Substance: .ALPHA.-TOCOPHEROL
  14. LIPITOR [Concomitant]
     Active Substance: ATORVASTATIN CALCIUM
  15. TORSEMIDE. [Concomitant]
     Active Substance: TORSEMIDE
  16. COREG CR [Suspect]
     Active Substance: CARVEDILOL PHOSPHATE
     Indication: BLOOD PRESSURE MEASUREMENT
     Dosage: UNK
  17. BUPROPION. [Concomitant]
     Active Substance: BUPROPION
  18. ELIQUIS [Concomitant]
     Active Substance: APIXABAN
  19. PREVACID [Concomitant]
     Active Substance: LANSOPRAZOLE
  20. LORAZEPAM. [Concomitant]
     Active Substance: LORAZEPAM
  21. TOUJEO INSULIN [Concomitant]

REACTIONS (4)
  - Oxygen supplementation [Unknown]
  - Myocardial infarction [Recovered/Resolved with Sequelae]
  - Cardiac pacemaker insertion [Unknown]
  - Implantable defibrillator insertion [Unknown]

NARRATIVE: CASE EVENT DATE: 20150409
